FAERS Safety Report 8869135 (Version 1)
Quarter: 2012Q4

REPORT INFORMATION
  Report Type: Spontaneous
  Country: IT (occurrence: None)
  Receive Date: 20121023
  Receipt Date: 20121023
  Transmission Date: 20130627
  Serious: Yes (Hospitalization)
  Sender: FDA-Public Use
  Company Number: GER/ITL/12/0026239

PATIENT
  Age: 75 Year
  Sex: Female

DRUGS (3)
  1. CITALOPRAM (CITALOPRAM) [Suspect]
     Indication: DEPRESSION
     Dosage: 40 mg, 1 in 1 D, Oral
     Dates: start: 20100101, end: 20120921
  2. LOBIVON [Suspect]
     Indication: HYPERTENSION  ARTERIAL
     Dosage: 1 Dosage forms, 1 in 1 D, Oral
     Route: 048
     Dates: start: 20100101, end: 20120921
  3. COUMADIN (WARFARIN) [Concomitant]

REACTIONS (3)
  - Sinus bradycardia [None]
  - Electrocardiogram QT prolonged [None]
  - Presyncope [None]
